FAERS Safety Report 19083242 (Version 1)
Quarter: 2021Q2

REPORT INFORMATION
  Report Type: Spontaneous
  Country: US (occurrence: US)
  Receive Date: 20210401
  Receipt Date: 20210401
  Transmission Date: 20210717
  Serious: Yes (Other)
  Sender: FDA-Public Use
  Company Number: None

PATIENT
  Sex: Female

DRUGS (2)
  1. AMPHETAMINE XR [Suspect]
     Active Substance: AMPHETAMINE
  2. AMPHETAMINE ER [Suspect]
     Active Substance: AMPHETAMINE

REACTIONS (3)
  - Arthralgia [None]
  - Drug ineffective [None]
  - Nausea [None]
